FAERS Safety Report 10055257 (Version 1)
Quarter: 2014Q2

REPORT INFORMATION
  Report Type: Spontaneous
  Country: US (occurrence: US)
  Receive Date: 20140403
  Receipt Date: 20140403
  Transmission Date: 20141212
  Serious: Yes (Other)
  Sender: FDA-Public Use
  Company Number: US-JNJFOC-20140316403

PATIENT
  Age: 59 Year
  Sex: Female
  Weight: 48.5 kg

DRUGS (3)
  1. IBUPROFEN [Suspect]
     Indication: PAIN
  2. ASPIRIN [Suspect]
     Indication: PAIN
     Route: 065
  3. LYRICA [Suspect]
     Indication: FIBROMYALGIA
     Route: 065

REACTIONS (7)
  - Tremor [Not Recovered/Not Resolved]
  - Tremor [Not Recovered/Not Resolved]
  - Spinal operation [Unknown]
  - Gastric ulcer [Not Recovered/Not Resolved]
  - Paraesthesia [Not Recovered/Not Resolved]
  - Irritability [Not Recovered/Not Resolved]
  - Drug ineffective [Unknown]
